FAERS Safety Report 5565147-5 (Version None)
Quarter: 2007Q4

REPORT INFORMATION
  Report Type: 
  Country: None (occurrence: None)
  Receive Date: 20071218
  Receipt Date: 20071211
  Transmission Date: 20080405
  Serious: Yes (Hospitalization, Other)
  Sender: FDA-Public Use
  Company Number: US-MERCK-0702USA01500

PATIENT
  Age: 66 Year
  Sex: Male

DRUGS (2)
  1. FOSAMAX [Suspect]
     Indication: OSTEOPOROSIS
     Route: 048
     Dates: start: 20020501
  2. FOSAMAX [Suspect]
     Route: 048
     Dates: start: 20030101, end: 20050101

REACTIONS (10)
  - ABSCESS [None]
  - ANEURYSM REPAIR [None]
  - APPENDICITIS [None]
  - ATRIAL FIBRILLATION [None]
  - CONJUNCTIVAL HAEMORRHAGE [None]
  - CORONARY ARTERY DISEASE [None]
  - GALLBLADDER DISORDER [None]
  - OSTEOMYELITIS [None]
  - OSTEONECROSIS [None]
  - RESORPTION BONE INCREASED [None]
